FAERS Safety Report 23132008 (Version 1)
Quarter: 2023Q4

REPORT INFORMATION
  Report Type: Spontaneous
  Country: US (occurrence: US)
  Receive Date: 20231101
  Receipt Date: 20231101
  Transmission Date: 20240109
  Serious: No
  Sender: FDA-Public Use
  Company Number: US-Accord-293020

PATIENT
  Sex: Female
  Weight: 52.16 kg

DRUGS (9)
  1. ESCITALOPRAM [Suspect]
     Active Substance: ESCITALOPRAM OXALATE
     Indication: Anxiety
     Route: 048
     Dates: start: 20221123
  2. ALPRAZOLAM [Concomitant]
     Active Substance: ALPRAZOLAM
     Dosage: 0.5MG ONCE DAY
  3. ASPIRIN [Concomitant]
     Active Substance: ASPIRIN
     Dosage: 80MG A ONCE DAY
  4. CLOPIDOGREL [Concomitant]
     Active Substance: CLOPIDOGREL BISULFATE
     Dosage: 75MG /ORAL/ONCE A DAY
     Route: 048
  5. ROSUVASTATIN [Concomitant]
     Active Substance: ROSUVASTATIN
     Dosage: 20 MG/ORAL/ONCE A DAY
     Route: 048
  6. VALSARTAN [Concomitant]
     Active Substance: VALSARTAN
     Dosage: 160 MG/TWICE A DAY
  7. BUMETANIDE [Concomitant]
     Active Substance: BUMETANIDE
     Dosage: 0.5MG /DAILY
  8. PANTOPRAZOLE [Concomitant]
     Active Substance: PANTOPRAZOLE
     Dosage: 40MG/PER DAY
  9. ESCITALOPRAM [Suspect]
     Active Substance: ESCITALOPRAM OXALATE
     Indication: Anxiety
     Route: 048
     Dates: start: 20221206

REACTIONS (6)
  - Heart rate increased [Unknown]
  - Hypertension [Unknown]
  - Hyperhidrosis [Unknown]
  - Nausea [Unknown]
  - Muscle rigidity [Unknown]
  - Epistaxis [Unknown]
